FAERS Safety Report 22368225 (Version 1)
Quarter: 2023Q2

REPORT INFORMATION
  Report Type: Spontaneous
  Country: CA (occurrence: CA)
  Receive Date: 20230525
  Receipt Date: 20230525
  Transmission Date: 20230722
  Serious: Yes (Hospitalization, Other)
  Sender: FDA-Public Use
  Company Number: CA-HLS-202301168

PATIENT
  Age: 20 Year
  Sex: Male

DRUGS (22)
  1. ARIPIPRAZOLE [Suspect]
     Active Substance: ARIPIPRAZOLE
     Indication: Schizophrenia
     Dosage: AMOUNT: 15 MILLIGRAM?NOT SPECIFIED DOSAGE FORM
     Route: 065
  2. ARIPIPRAZOLE [Suspect]
     Active Substance: ARIPIPRAZOLE
     Indication: Social anxiety disorder
     Dosage: AMOUNT: 15 MILLIGRAM?NOT SPECIFIED DOSAGE FORM
     Route: 065
  3. ARIPIPRAZOLE [Suspect]
     Active Substance: ARIPIPRAZOLE
     Indication: Substance use
     Dosage: AMOUNT: 15 MILLIGRAM?NOT SPECIFIED DOSAGE FORM
     Route: 065
  4. BENZTROPINE [Concomitant]
     Active Substance: BENZTROPINE
     Route: 065
  5. CLOZAPINE [Suspect]
     Active Substance: CLOZAPINE
     Indication: Schizophrenia
     Dosage: AMOUNT: 175 MILLIGRAM
     Route: 065
  6. CLOZAPINE [Suspect]
     Active Substance: CLOZAPINE
     Indication: Schizophrenia
     Dosage: AMOUNT: 200 MILLIGRAM?UNKNOWN DOSAGE FORM
     Route: 065
  7. CLOZAPINE [Suspect]
     Active Substance: CLOZAPINE
     Indication: Schizophrenia
     Dosage: 1 EVERY 1 DAYS?AMOUNT: 200 MILLIGRAM?UNKNOWN DOSAGE FORM
     Route: 065
  8. CLOZAPINE [Suspect]
     Active Substance: CLOZAPINE
     Indication: Schizophrenia
     Route: 065
  9. CLOZAPINE [Suspect]
     Active Substance: CLOZAPINE
     Indication: Schizophrenia
     Dosage: UNKNOWN DOSAGE FORM
     Route: 065
  10. CLOZAPINE [Suspect]
     Active Substance: CLOZAPINE
     Indication: Schizophrenia
     Dosage: AMOUNT: 6.25 MILLIGRAM?TABLETS DOSAGE FORM
     Route: 065
  11. INVEGA [Concomitant]
     Active Substance: PALIPERIDONE
     Dosage: SUSPENSION (EXTENDED-RELEASE) DOSAGE FORM
     Route: 030
  12. LORAZEPAM [Concomitant]
     Active Substance: LORAZEPAM
     Dosage: NOT SPECIFIED DOSAGE FORM
     Route: 065
  13. QUETIAPINE [Suspect]
     Active Substance: QUETIAPINE
     Indication: Schizophrenia
     Dosage: AMOUNT: 1000 MILLIGRAM?TABLETS DOSAGE FORM
     Route: 065
  14. QUETIAPINE [Suspect]
     Active Substance: QUETIAPINE
     Indication: Social anxiety disorder
     Dosage: AMOUNT: 1000 MILLIGRAM?TABLETS DOSAGE FORM
     Route: 065
  15. QUETIAPINE [Suspect]
     Active Substance: QUETIAPINE
     Indication: Substance use
     Dosage: AMOUNT: 1000 MILLIGRAM?TABLETS DOSAGE FORM
     Route: 065
  16. RISPERDAL [Suspect]
     Active Substance: RISPERIDONE
     Indication: Schizophrenia
     Dosage: 1 EVERY 1 DAYS?AMOUNT: 2 MILLIGRAM?NOT SPECIFIED DOSAGE FORM?THERAPY DURATION: 10 MONTHS
     Route: 048
  17. RISPERDAL [Suspect]
     Active Substance: RISPERIDONE
     Indication: Social anxiety disorder
     Dosage: 1 EVERY 1 DAYS?AMOUNT: 2 MILLIGRAM?NOT SPECIFIED DOSAGE FORM?THERAPY DURATION: 10 MONTHS
     Route: 048
  18. RISPERDAL [Suspect]
     Active Substance: RISPERIDONE
     Indication: Substance use
     Dosage: 1 EVERY 1 DAYS?AMOUNT: 2 MILLIGRAM?NOT SPECIFIED DOSAGE FORM?THERAPY DURATION: 10 MONTHS
     Route: 048
  19. RISPERDAL [Suspect]
     Active Substance: RISPERIDONE
     Indication: Schizophrenia
     Dosage: THERAPY DURATION: 10 MONTHS
     Route: 065
  20. RISPERDAL [Suspect]
     Active Substance: RISPERIDONE
     Indication: Social anxiety disorder
     Dosage: THERAPY DURATION: 10 MONTHS
     Route: 065
  21. RISPERDAL [Suspect]
     Active Substance: RISPERIDONE
     Indication: Substance use
     Dosage: THERAPY DURATION: 10 MONTHS
     Route: 065
  22. SERTRALINE [Suspect]
     Active Substance: SERTRALINE HYDROCHLORIDE
     Indication: Social anxiety disorder
     Dosage: AMOUNT: 100 MILLIGRAM?CAPSULES DOSAGE FORM
     Route: 065

REACTIONS (7)
  - Blood creatine phosphokinase increased [Recovered/Resolved]
  - Drug ineffective [Recovered/Resolved]
  - Hallucination [Recovered/Resolved]
  - Myalgia [Recovered/Resolved]
  - Rhabdomyolysis [Recovered/Resolved]
  - Treatment noncompliance [Recovered/Resolved]
  - Weight increased [Recovered/Resolved]
